FAERS Safety Report 12462833 (Version 3)
Quarter: 2017Q4

REPORT INFORMATION
  Report Type: Spontaneous
  Country: US (occurrence: US)
  Receive Date: 20160614
  Receipt Date: 20171004
  Transmission Date: 20180320
  Serious: Yes (Hospitalization, Other)
  Sender: FDA-Public Use
  Company Number: US-JNJFOC-20160515096

PATIENT
  Age: 34 Year
  Sex: Female

DRUGS (3)
  1. SYNTHROID [Concomitant]
     Active Substance: LEVOTHYROXINE SODIUM
     Indication: HYPOTHYROIDISM
     Route: 065
  2. INVOKANA [Suspect]
     Active Substance: CANAGLIFLOZIN
     Indication: DIABETES MELLITUS MANAGEMENT
     Route: 048
     Dates: start: 201306, end: 201501
  3. INVOKANA [Suspect]
     Active Substance: CANAGLIFLOZIN
     Indication: DIABETES MELLITUS MANAGEMENT
     Route: 048
     Dates: start: 2015, end: 201502

REACTIONS (3)
  - Weight decreased [Recovered/Resolved]
  - Pancreatic failure [Unknown]
  - Diabetic ketoacidosis [Recovering/Resolving]

NARRATIVE: CASE EVENT DATE: 20150108
